FAERS Safety Report 7012825-7 (Version None)
Quarter: 2010Q3

REPORT INFORMATION
  Report Type: 
  Country: None (occurrence: None)
  Receive Date: 20100924
  Receipt Date: 20100917
  Transmission Date: 20110219
  Serious: Yes (Hospitalization)
  Sender: FDA-Public Use
  Company Number: B0675076A

PATIENT
  Sex: Male

DRUGS (3)
  1. AUGMENTIN '125' [Suspect]
     Indication: LUNG DISORDER
     Dosage: 1G THREE TIMES PER DAY
     Route: 048
     Dates: start: 20100828, end: 20100831
  2. ROCEPHIN [Suspect]
     Indication: LUNG DISORDER
     Dosage: 1G PER DAY
     Route: 042
     Dates: start: 20100831, end: 20100901
  3. FLAGYL [Suspect]
     Indication: PRODUCT USED FOR UNKNOWN INDICATION
     Dosage: 500MG TWICE PER DAY
     Route: 042
     Dates: start: 20100831, end: 20100901

REACTIONS (8)
  - ERYTHEMA [None]
  - OEDEMA PERIPHERAL [None]
  - PRURITUS [None]
  - PURPURA [None]
  - RASH [None]
  - RASH MACULO-PAPULAR [None]
  - TRANSAMINASES INCREASED [None]
  - URTICARIA [None]
